FAERS Safety Report 6292093-4 (Version None)
Quarter: 2009Q3

REPORT INFORMATION
  Report Type: 
  Country: None (occurrence: None)
  Receive Date: 20090731
  Receipt Date: 20071129
  Transmission Date: 20100115
  Serious: Yes (Hospitalization)
  Sender: FDA-Public Use
  Company Number: US-ASTRAZENECA-2006UW10839

PATIENT
  Age: 12266 Day
  Sex: Female
  Weight: 101.6 kg

DRUGS (8)
  1. SEROQUEL [Suspect]
     Indication: DEPRESSION
     Dosage: DOSE-  25MG-300MG DAILY
     Route: 048
     Dates: start: 20021205
  2. SEROQUEL [Suspect]
     Route: 048
     Dates: start: 20050901, end: 20060101
  3. ZYPREXA [Suspect]
  4. KLONOPIN [Concomitant]
     Dosage: STRENGTH-  1 MG DOSE- 1MG-4MG DAILY
     Route: 048
  5. LEXAPRO [Concomitant]
  6. DEPAKOTE ER [Concomitant]
  7. EFFEXOR [Concomitant]
  8. INDERAL [Concomitant]

REACTIONS (4)
  - DIABETES MELLITUS [None]
  - GESTATIONAL DIABETES [None]
  - GLUCOSE TOLERANCE IMPAIRED IN PREGNANCY [None]
  - INJURY [None]
